FAERS Safety Report 8320472-X (Version None)
Quarter: 2012Q2

REPORT INFORMATION
  Report Type: 
  Country: None (occurrence: None)
  Receive Date: 20120426
  Receipt Date: 20120426
  Transmission Date: 20120825
  Serious: No
  Sender: FDA-Public Use
  Company Number: None

PATIENT
  Sex: Female
  Weight: 71.6683 kg

DRUGS (2)
  1. METHYLPREDNISOLONE 4MG TAB [Suspect]
     Indication: DERMATITIS CONTACT
     Dosage: 4 MG 6 TABS DAY 1, 5 TABS - DAY 2 4 TABS DAY 3, 3 TABS DAY 4 2 TABS DAY 5 + 1 TAB DAY 6 PO
     Route: 048
     Dates: start: 20120324, end: 20120329
  2. PREDNISONE [Suspect]
     Indication: DERMATITIS CONTACT
     Dosage: 10 MG QIDX4 DAYS, THEN TID X3 DAYS, THEN BIDX2DAYS + THEN QD X 2 DAYS PO
     Route: 048
     Dates: start: 20120310, end: 20120320

REACTIONS (10)
  - COUGH [None]
  - DRUG INEFFECTIVE [None]
  - FEELING ABNORMAL [None]
  - CONDITION AGGRAVATED [None]
  - BLOOD PRESSURE INCREASED [None]
  - IRRITABILITY [None]
  - DERMATITIS CONTACT [None]
  - VAGINAL DISCHARGE [None]
  - OROPHARYNGEAL PAIN [None]
  - DYSPHONIA [None]
